FAERS Safety Report 17033027 (Version 5)
Quarter: 2022Q1

REPORT INFORMATION
  Report Type: Report from Study
  Country: US (occurrence: US)
  Receive Date: 20191114
  Receipt Date: 20220113
  Transmission Date: 20220424
  Serious: No
  Sender: FDA-Public Use
  Company Number: NVSC2019US036115

PATIENT
  Age: 65 Year
  Sex: Female

DRUGS (2)
  1. GILENYA [Suspect]
     Active Substance: FINGOLIMOD HYDROCHLORIDE
     Indication: Multiple sclerosis
     Dosage: 0.5 MG, QD
     Route: 048
     Dates: start: 20150420
  2. GILENYA [Suspect]
     Active Substance: FINGOLIMOD HYDROCHLORIDE
     Dosage: 0.5 MG, QD
     Route: 048
     Dates: start: 20160225

REACTIONS (5)
  - Depressed mood [Not Recovered/Not Resolved]
  - COVID-19 [Unknown]
  - Memory impairment [Unknown]
  - Asthenia [Unknown]
  - Infection [Unknown]

NARRATIVE: CASE EVENT DATE: 20210829
